FAERS Safety Report 7040520-7 (Version None)
Quarter: 2010Q4

REPORT INFORMATION
  Report Type: 
  Country: None (occurrence: None)
  Receive Date: 20101008
  Receipt Date: 20101008
  Transmission Date: 20110411
  Serious: No
  Sender: FDA-Public Use
  Company Number: None

PATIENT
  Age: 64 Year
  Sex: Female
  Weight: 61.2356 kg

DRUGS (1)
  1. BONIVA [Suspect]
     Dosage: 1 TABLET 1 X MONTH
     Dates: start: 20100701

REACTIONS (4)
  - DYSPEPSIA [None]
  - EYE PAIN [None]
  - MYALGIA [None]
  - TOOTHACHE [None]
